FAERS Safety Report 8111959-3 (Version None)
Quarter: 2012Q1

REPORT INFORMATION
  Report Type: 
  Country: None (occurrence: None)
  Receive Date: 20120203
  Receipt Date: 20110916
  Transmission Date: 20120608
  Serious: Yes (Other)
  Sender: FDA-Public Use
  Company Number: US-GLAXOSMITHKLINE-A0944965A

PATIENT
  Age: 73 Year
  Sex: Female

DRUGS (7)
  1. SYNTHROID [Concomitant]
  2. GLIPIZIDE [Concomitant]
  3. LIPITOR [Concomitant]
  4. ALTACE [Concomitant]
  5. OMEPRAZOLE [Concomitant]
  6. ARIXTRA [Suspect]
     Indication: THROMBOSIS PROPHYLAXIS
     Dosage: 2.5MG PER DAY
     Route: 058
     Dates: start: 20110808, end: 20110823
  7. ATENOLOL [Concomitant]

REACTIONS (2)
  - HAEMATOMA [None]
  - HAEMORRHAGE [None]
